FAERS Safety Report 12426659 (Version 1)
Quarter: 2016Q2

REPORT INFORMATION
  Report Type: Spontaneous
  Country: US (occurrence: US)
  Receive Date: 20160601
  Receipt Date: 20160601
  Transmission Date: 20160815
  Serious: No
  Sender: FDA-Public Use
  Company Number: US-SEPTODONT-201502917

PATIENT
  Age: 44 Year
  Sex: Female
  Weight: 59 kg

DRUGS (7)
  1. BENZOCAINE 20% [Concomitant]
     Active Substance: BENZOCAINE
     Indication: LOCAL ANAESTHESIA
     Route: 061
     Dates: start: 20150529, end: 20150529
  2. SEPTOCAINE AND EPINEPHRINE [Suspect]
     Active Substance: ARTICAINE HYDROCHLORIDE\EPINEPHRINE BITARTRATE
     Indication: LOCAL ANAESTHESIA
     Dosage: 1.7 ML 1 CARTRIDGE VIA INFERFIOR ALVEOLAR BLOCK
     Route: 004
     Dates: start: 20150529, end: 20150529
  3. SEPTOCAINE AND EPINEPHRINE [Suspect]
     Active Substance: ARTICAINE HYDROCHLORIDE\EPINEPHRINE BITARTRATE
     Indication: LOCAL ANAESTHESIA
     Dosage: 2X 1.7ML INJECTIONS 1 CARTRIDGE VIA INFERFIOR ALVEOLAR BLOCK AND GINGIVAL INFILTRATION
     Route: 004
     Dates: start: 20150611, end: 20150611
  4. FORMO CRESOL [Concomitant]
     Active Substance: CRESOL
  5. SEPTOCAINE AND EPINEPHRINE [Suspect]
     Active Substance: ARTICAINE HYDROCHLORIDE\EPINEPHRINE BITARTRATE
     Indication: LOCAL ANAESTHESIA
     Dosage: 1.7 ML, 1 CARTRIDGE VIA INFERFIOR ALVEOLAR BLOCK
     Route: 004
     Dates: start: 20150601, end: 20150601
  6. BENZOCAINE 20% [Concomitant]
     Active Substance: BENZOCAINE
     Indication: LOCAL ANAESTHESIA
     Route: 061
     Dates: start: 20150611, end: 20150611
  7. BENZOCAINE 20% [Concomitant]
     Active Substance: BENZOCAINE
     Indication: LOCAL ANAESTHESIA
     Route: 061
     Dates: start: 20150601, end: 20150601

REACTIONS (2)
  - Pain [Unknown]
  - Hypoaesthesia [Recovered/Resolved]

NARRATIVE: CASE EVENT DATE: 20150611
